FAERS Safety Report 24574466 (Version 1)
Quarter: 2024Q4

REPORT INFORMATION
  Report Type: Spontaneous
  Country: US (occurrence: US)
  Receive Date: 20241104
  Receipt Date: 20241104
  Transmission Date: 20250114
  Serious: Yes (Other)
  Sender: BIOVITRUM
  Company Number: US-BIOVITRUM-2024-US-013939

PATIENT
  Age: 63 Year
  Sex: Male

DRUGS (1)
  1. ANAKINRA [Suspect]
     Active Substance: ANAKINRA
     Indication: Secondary amyloidosis

REACTIONS (3)
  - Infection [Unknown]
  - Chronic kidney disease [Unknown]
  - Off label use [Unknown]
